FAERS Safety Report 16940035 (Version 1)
Quarter: 2019Q4

REPORT INFORMATION
  Report Type: Spontaneous
  Country: ES (occurrence: ES)
  Receive Date: 20191021
  Receipt Date: 20191021
  Transmission Date: 20200122
  Serious: Yes (Other)
  Sender: FDA-Public Use
  Company Number: ES-DENTSPLY-2019SCDP000559

PATIENT
  Age: 38 Year
  Sex: Female

DRUGS (2)
  1. LIDOCAINE. [Suspect]
     Active Substance: LIDOCAINE
     Indication: SKIN COSMETIC PROCEDURE
     Dosage: CREAM
  2. MEPIVACAINE HCL [Suspect]
     Active Substance: MEPIVACAINE HYDROCHLORIDE
     Indication: SKIN COSMETIC PROCEDURE
     Dosage: UNK

REACTIONS (6)
  - Rash macular [Recovered/Resolved]
  - Therapeutic product cross-reactivity [Unknown]
  - Pruritus [Recovered/Resolved]
  - Flushing [Recovered/Resolved]
  - Drug hypersensitivity [Unknown]
  - Skin test positive [Unknown]
